FAERS Safety Report 7206110-8 (Version None)
Quarter: 2011Q1

REPORT INFORMATION
  Report Type: 
  Country: None (occurrence: None)
  Receive Date: 20110103
  Receipt Date: 20101223
  Transmission Date: 20110831
  Serious: Yes (Hospitalization)
  Sender: FDA-Public Use
  Company Number: NL-ASTELLAS-2010EU006894

PATIENT
  Sex: Male

DRUGS (3)
  1. TACROLIMUS [Suspect]
     Indication: DERMATITIS ATOPIC
     Dosage: 0.03 %, UNKNOWN/D
     Route: 065
     Dates: start: 20071126
  2. CETRIZINE [Concomitant]
     Indication: HYPERSENSITIVITY
     Dosage: 10 MG, UID/QD
     Route: 048
     Dates: start: 20061018
  3. RHINOCORT [Concomitant]
     Indication: RHINITIS
     Dosage: UNK
     Route: 045
     Dates: start: 20080922

REACTIONS (3)
  - DRUG INEFFECTIVE [None]
  - IMPETIGO [None]
  - DERMATITIS ATOPIC [None]
